FAERS Safety Report 10206360 (Version 1)
Quarter: 2014Q2

REPORT INFORMATION
  Report Type: Spontaneous
  Country: US (occurrence: None)
  Receive Date: 20140527
  Receipt Date: 20140527
  Transmission Date: 20141212
  Serious: Yes (Life-Threatening)
  Sender: FDA-Public Use
  Company Number: None

PATIENT
  Age: 63 Year
  Sex: Female
  Weight: 74.84 kg

DRUGS (1)
  1. OXYCODONE- ACETAMINOPHEN 5-325 [Suspect]
     Indication: URINARY TRACT INFECTION
     Dosage: 1, EVERY 8 HOURS
     Dates: start: 20140516, end: 20140518

REACTIONS (5)
  - Amnesia [None]
  - Confusional state [None]
  - Road traffic accident [None]
  - Legal problem [None]
  - Malaise [None]
